FAERS Safety Report 22019353 (Version 3)
Quarter: 2023Q1

REPORT INFORMATION
  Report Type: Spontaneous
  Country: AU (occurrence: None)
  Receive Date: 20230222
  Receipt Date: 20230310
  Transmission Date: 20230418
  Serious: Yes (Other)
  Sender: FDA-Public Use
  Company Number: AU-ROCHE-3289172

PATIENT
  Sex: Female
  Weight: 100 kg

DRUGS (3)
  1. CELLCEPT [Suspect]
     Active Substance: MYCOPHENOLATE MOFETIL
     Indication: Neuromyelitis optica spectrum disorder
     Route: 065
  2. CELLCEPT [Suspect]
     Active Substance: MYCOPHENOLATE MOFETIL
     Indication: Myelin oligodendrocyte glycoprotein antibody-associated disease
  3. AZATHIOPRINE [Suspect]
     Active Substance: AZATHIOPRINE
     Indication: Neuromyelitis optica spectrum disorder
     Route: 065

REACTIONS (8)
  - Invasive ductal breast carcinoma [Unknown]
  - Eye pain [Unknown]
  - Retinal disorder [Unknown]
  - Off label use [Unknown]
  - Drug ineffective [Unknown]
  - Disease progression [Unknown]
  - Retinal degeneration [Unknown]
  - Intraductal proliferative breast lesion [Unknown]
